FAERS Safety Report 23414123 (Version 1)
Quarter: 2024Q1

REPORT INFORMATION
  Report Type: Spontaneous
  Country: US (occurrence: US)
  Receive Date: 20240117
  Receipt Date: 20240117
  Transmission Date: 20240410
  Serious: Yes (Other)
  Sender: FDA-Public Use
  Company Number: US-STRIDES ARCOLAB LIMITED-2024SP000530

PATIENT
  Age: 72 Year
  Sex: Female

DRUGS (9)
  1. ETOPOSIDE [Suspect]
     Active Substance: ETOPOSIDE
     Indication: Adrenocortical carcinoma
     Dosage: UNK
     Route: 065
  2. ETOPOSIDE [Suspect]
     Active Substance: ETOPOSIDE
     Indication: Metastatic neoplasm
  3. DOXORUBICIN [Suspect]
     Active Substance: DOXORUBICIN
     Indication: Adrenocortical carcinoma
     Dosage: UNK
     Route: 065
  4. DOXORUBICIN [Suspect]
     Active Substance: DOXORUBICIN
     Indication: Metastatic neoplasm
  5. CISPLATIN [Suspect]
     Active Substance: CISPLATIN
     Indication: Adrenocortical carcinoma
     Dosage: UNK
     Route: 065
  6. CISPLATIN [Suspect]
     Active Substance: CISPLATIN
     Indication: Metastatic neoplasm
  7. MITOTANE [Concomitant]
     Active Substance: MITOTANE
     Indication: Adrenocortical carcinoma
     Dosage: UNK
     Route: 065
  8. MITOTANE [Concomitant]
     Active Substance: MITOTANE
     Indication: Metastatic neoplasm
  9. HYDROCORTISONE [Concomitant]
     Active Substance: HYDROCORTISONE
     Indication: Product used for unknown indication
     Dosage: UNK
     Route: 065

REACTIONS (2)
  - Cardiotoxicity [Unknown]
  - Off label use [Unknown]
